FAERS Safety Report 10481141 (Version 1)
Quarter: 2014Q3

REPORT INFORMATION
  Report Type: Spontaneous
  Country: FI (occurrence: None)
  Receive Date: 20140923
  Receipt Date: 20140923
  Transmission Date: 20150326
  Serious: No
  Sender: FDA-Public Use
  Company Number: SWE-SPN-2008007

PATIENT
  Age: 33 Year
  Sex: Female

DRUGS (8)
  1. CITRULLINE [Concomitant]
     Active Substance: CITRULLINE
  2. CARBAGLU [Suspect]
     Active Substance: CARGLUMIC ACID
     Indication: HYPERAMMONAEMIA
     Route: 048
     Dates: start: 20080228, end: 20080303
  3. SODIUM PHENYLBUTYRATE. [Concomitant]
     Active Substance: SODIUM PHENYLBUTYRATE
  4. AMMONAPS [Concomitant]
     Active Substance: SODIUM PHENYLBUTYRATE
  5. PREDNISOLONE. [Concomitant]
     Active Substance: PREDNISOLONE
  6. ZYPREXA [Concomitant]
     Active Substance: OLANZAPINE
  7. OLANZAPINE. [Concomitant]
     Active Substance: OLANZAPINE
  8. SODIUM BENZOATE [Concomitant]
     Active Substance: SODIUM BENZOATE

REACTIONS (3)
  - White blood cell count decreased [None]
  - Off label use [None]
  - Condition aggravated [None]

NARRATIVE: CASE EVENT DATE: 20080228
